FAERS Safety Report 5467042-9 (Version None)
Quarter: 2007Q3

REPORT INFORMATION
  Report Type: 
  Country: None (occurrence: None)
  Receive Date: 20070925
  Receipt Date: 20070921
  Transmission Date: 20080115
  Serious: Yes (Hospitalization, Disabling)
  Sender: FDA-Public Use
  Company Number: B0485956A

PATIENT
  Age: 70 Year
  Sex: Female
  Weight: 54 kg

DRUGS (14)
  1. VALTREX [Suspect]
     Indication: HERPES ZOSTER
     Dosage: 500MG THREE TIMES PER DAY
     Route: 048
     Dates: start: 20070831, end: 20070901
  2. ARASENA-A [Concomitant]
     Route: 061
     Dates: start: 20070831
  3. NAPROXEN [Concomitant]
     Indication: HERPES ZOSTER
     Route: 048
     Dates: start: 20070831, end: 20070902
  4. FUROSEMIDE [Concomitant]
     Indication: RENAL FAILURE
     Dosage: 80MG PER DAY
     Route: 048
  5. TANKARU [Concomitant]
     Indication: RENAL FAILURE
     Dosage: 3000MG PER DAY
     Route: 048
  6. ADALAT [Concomitant]
     Indication: HYPERTENSION
     Dosage: 20MG PER DAY
     Route: 048
  7. ALFAROL [Concomitant]
     Indication: RENAL FAILURE
     Dosage: .25MG PER DAY
     Route: 048
  8. FRANDOL S [Concomitant]
     Indication: ANGINA PECTORIS
     Dosage: 40MG PER DAY
     Route: 062
  9. MICARDIS [Concomitant]
     Indication: HYPERTENSION
     Dosage: 20MG PER DAY
     Route: 048
  10. ASPIRIN [Concomitant]
     Indication: ANGINA PECTORIS
     Dosage: 100MG PER DAY
     Route: 048
  11. LIVALO [Concomitant]
     Dosage: 2MG PER DAY
     Route: 048
  12. SENNOSIDE [Concomitant]
     Indication: CONSTIPATION
     Dosage: 12MG PER DAY
     Route: 048
  13. ZOLPIDEM [Concomitant]
     Indication: INSOMNIA
     Dosage: 5MG PER DAY
     Route: 048
  14. DOXAZOSIN MESYLATE [Concomitant]
     Indication: HYPERTENSION
     Dosage: 2MG PER DAY
     Route: 048

REACTIONS (6)
  - ALTERED STATE OF CONSCIOUSNESS [None]
  - BLOOD CREATINE INCREASED [None]
  - BLOOD UREA INCREASED [None]
  - CONDITION AGGRAVATED [None]
  - DYSKINESIA [None]
  - VOMITING [None]
